FAERS Safety Report 22382522 (Version 1)
Quarter: 2023Q2

REPORT INFORMATION
  Report Type: Spontaneous
  Country: US (occurrence: None)
  Receive Date: 20230526
  Receipt Date: 20230526
  Transmission Date: 20230722
  Serious: No
  Sender: FDA-Public Use
  Company Number: None

PATIENT
  Sex: Male

DRUGS (7)
  1. CAPECITABINE [Suspect]
     Active Substance: CAPECITABINE
     Indication: Gastric cancer
     Dosage: OTHER QUANTITY : 4T 14D ON/7D OFF;?FREQUENCY : TWICE A DAY;?
     Route: 048
     Dates: end: 202305
  2. ONDANSETRON [Concomitant]
     Active Substance: ONDANSETRON
  3. PROCHLORPERAZINE [Concomitant]
     Active Substance: PROCHLORPERAZINE
  4. OXYCODONE [Concomitant]
     Active Substance: OXYCODONE
  5. IBUPROFEN [Concomitant]
     Active Substance: IBUPROFEN
  6. PREDNISONE [Concomitant]
     Active Substance: PREDNISONE
  7. MORPHINE [Concomitant]
     Active Substance: MORPHINE

REACTIONS (1)
  - Hospice care [None]
